FAERS Safety Report 9746305 (Version 1)
Quarter: 2013Q4

REPORT INFORMATION
  Report Type: Spontaneous
  Country: US (occurrence: US)
  Receive Date: 20131211
  Receipt Date: 20131211
  Transmission Date: 20140711
  Serious: Yes (Other)
  Sender: FDA-Public Use
  Company Number: US-PFIZER INC-2013351439

PATIENT
  Sex: Male

DRUGS (1)
  1. SULFASALAZINE [Suspect]
     Indication: COLITIS
     Dosage: 2 PILLS IN THE MORNING AND 2 IN THE EVENING
     Dates: start: 2013

REACTIONS (1)
  - Haematochezia [Unknown]
